FAERS Safety Report 8762973 (Version 1)
Quarter: 2012Q4

REPORT INFORMATION
  Report Type: Spontaneous
  Country: US (occurrence: None)
  Receive Date: 20120830
  Receipt Date: 20120830
  Transmission Date: 20130627
  Serious: Yes (Hospitalization)
  Sender: FDA-Public Use
  Company Number: None

PATIENT
  Age: 75 Year
  Sex: Male
  Weight: 81.5 kg

DRUGS (1)
  1. GLYBURIDE\METFORMIN [Suspect]
     Indication: DIABETES MELLITUS
     Dosage: 2 TAB BID PO
     Route: 048
     Dates: start: 20090603, end: 20120731

REACTIONS (1)
  - Hypoglycaemia [None]
